FAERS Safety Report 13531251 (Version 2)
Quarter: 2017Q2

REPORT INFORMATION
  Report Type: Spontaneous
  Country: US (occurrence: US)
  Receive Date: 20170510
  Receipt Date: 20170621
  Transmission Date: 20170830
  Serious: No
  Sender: FDA-Public Use
  Company Number: US-PFIZER INC-2017199310

PATIENT
  Age: 80 Year
  Sex: Male
  Weight: 90.72 kg

DRUGS (3)
  1. VIAGRA [Suspect]
     Active Substance: SILDENAFIL CITRATE
     Indication: ERECTILE DYSFUNCTION
     Dosage: 100MG 1/2 TAB TO A WHOLE TABLET, AS NEEDED
     Route: 048
  2. SOTALOL. [Interacting]
     Active Substance: SOTALOL
     Indication: CARDIAC FLUTTER
     Dosage: 80 MG, 2X/DAY
     Route: 048
     Dates: start: 201703
  3. FINASTERIDE. [Concomitant]
     Active Substance: FINASTERIDE
     Indication: PROSTATOMEGALY
     Dosage: 5 MG, 1X/DAY
     Route: 048

REACTIONS (2)
  - Drug interaction [Not Recovered/Not Resolved]
  - Drug ineffective [Not Recovered/Not Resolved]

NARRATIVE: CASE EVENT DATE: 201703
